FAERS Safety Report 24276322 (Version 1)
Quarter: 2024Q3

REPORT INFORMATION
  Report Type: Spontaneous
  Country: US (occurrence: US)
  Receive Date: 20240903
  Receipt Date: 20240903
  Transmission Date: 20241016
  Serious: No
  Sender: AMGEN
  Company Number: US-AMGEN-USASP2024171785

PATIENT

DRUGS (5)
  1. BEVACIZUMAB [Suspect]
     Active Substance: BEVACIZUMAB
     Indication: Neurofibromatosis
     Dosage: UNK
     Route: 065
  2. LAPATINIB [Concomitant]
     Active Substance: LAPATINIB
     Indication: Neurofibromatosis
  3. EVEROLIMUS [Concomitant]
     Active Substance: EVEROLIMUS
     Indication: Neurofibromatosis
  4. TEMSIROLIMUS [Concomitant]
     Active Substance: TEMSIROLIMUS
     Indication: Neurofibromatosis
  5. BRIGATINIB [Concomitant]
     Active Substance: BRIGATINIB
     Indication: Neurofibromatosis

REACTIONS (3)
  - Toxicity to various agents [Unknown]
  - Off label use [Unknown]
  - Drug effective for unapproved indication [Unknown]
